FAERS Safety Report 4614042-4 (Version None)
Quarter: 2005Q1

REPORT INFORMATION
  Report Type: 
  Country: None (occurrence: None)
  Receive Date: 20050316
  Receipt Date: 20050302
  Transmission Date: 20050727
  Serious: Yes (Death)
  Sender: FDA-Public Use
  Company Number: GBS050316809

PATIENT
  Sex: Male
  Weight: 70 kg

DRUGS (2)
  1. OLANZAPINE [Suspect]
     Indication: AGITATION
     Dosage: 10 MG DAY
     Dates: start: 20040414
  2. VENLAFAXINE [Concomitant]

REACTIONS (2)
  - COMPLETED SUICIDE [None]
  - INJURY ASPHYXIATION [None]
